FAERS Safety Report 8423620-6 (Version None)
Quarter: 2012Q2

REPORT INFORMATION
  Report Type: 
  Country: None (occurrence: None)
  Receive Date: 20120608
  Receipt Date: 20111205
  Transmission Date: 20120825
  Serious: No
  Sender: FDA-Public Use
  Company Number: US-ASTRAZENECA-2011SE05935

PATIENT
  Age: 63 Year
  Sex: Female

DRUGS (4)
  1. TOPROL-XL [Suspect]
     Route: 048
  2. ATACAND [Suspect]
     Route: 048
  3. ATACAND HCT [Suspect]
     Route: 048
  4. CRESTOR [Suspect]
     Route: 048

REACTIONS (5)
  - HYPERTENSION [None]
  - GOUT [None]
  - ARTHRITIS [None]
  - DRUG DOSE OMISSION [None]
  - NASOPHARYNGITIS [None]
